FAERS Safety Report 8803654 (Version 1)
Quarter: 2012Q4

REPORT INFORMATION
  Report Type: 
  Country: US (occurrence: US)
  Receive Date: 20120924
  Receipt Date: 20120924
  Transmission Date: 20130627
  Serious: No
  Sender: FDA-Public Use
  Company Number: US-ROXANE LABORATORIES, INC.-2012-RO-01808RO

PATIENT
  Sex: Female

DRUGS (1)
  1. QUETIAPINE FUMARATE [Suspect]
     Indication: BIPOLAR II DISORDER
     Dosage: 300 mg
     Route: 048
     Dates: start: 201206

REACTIONS (1)
  - Nasal congestion [Not Recovered/Not Resolved]
